FAERS Safety Report 9158913 (Version 2)
Quarter: 2013Q2

REPORT INFORMATION
  Report Type: Spontaneous
  Country: DE (occurrence: DE)
  Receive Date: 20130313
  Receipt Date: 20130404
  Transmission Date: 20140414
  Serious: Yes (Hospitalization)
  Sender: FDA-Public Use
  Company Number: DE-BIOGENIDEC-2013BI022427

PATIENT
  Age: 41 Year
  Sex: Female
  Weight: 68 kg

DRUGS (5)
  1. AVONEX [Suspect]
     Indication: MULTIPLE SCLEROSIS
     Route: 030
     Dates: start: 20040101
  2. BELOC ZOK MITE [Concomitant]
     Indication: BLOOD PRESSURE INCREASED
     Dates: start: 200908
  3. TORASEMIDE [Concomitant]
     Indication: BLOOD PRESSURE INCREASED
     Dates: start: 200908
  4. PANTOZOLE [Concomitant]
     Indication: BLOOD PRESSURE INCREASED
     Dates: start: 200908
  5. ARANESP [Concomitant]
     Indication: NEPHROGENIC ANAEMIA
     Route: 058
     Dates: start: 200908

REACTIONS (1)
  - Pericardial effusion [Recovered/Resolved]
